FAERS Safety Report 8444745-5 (Version None)
Quarter: 2012Q2

REPORT INFORMATION
  Report Type: 
  Country: None (occurrence: None)
  Receive Date: 20120618
  Receipt Date: 20120607
  Transmission Date: 20120825
  Serious: Yes (Hospitalization)
  Sender: FDA-Public Use
  Company Number: JP-ASTRAZENECA-2012SE38831

PATIENT
  Age: 56 Year
  Sex: Female

DRUGS (4)
  1. FORTEO [Concomitant]
     Route: 058
     Dates: start: 20111201
  2. NEXIUM [Suspect]
     Indication: GASTRIC ULCER
     Route: 048
     Dates: start: 20120201, end: 20120501
  3. REMICADE [Concomitant]
     Route: 041
     Dates: start: 20110701
  4. PENTASA [Concomitant]
     Route: 065
     Dates: start: 20110701

REACTIONS (1)
  - HYPOCALCAEMIA [None]
